FAERS Safety Report 6933276-7 (Version None)
Quarter: 2010Q3

REPORT INFORMATION
  Report Type: 
  Country: None (occurrence: None)
  Receive Date: 20100818
  Receipt Date: 20100818
  Transmission Date: 20110219
  Serious: Yes (Life-Threatening, Hospitalization, Disabling, Other)
  Sender: FDA-Public Use
  Company Number: None

PATIENT
  Sex: Female
  Weight: 100 kg

DRUGS (1)
  1. DETROL LA [Suspect]
     Dosage: 2 A DAY DAILY
     Dates: start: 20090101

REACTIONS (2)
  - ABDOMINAL PAIN [None]
  - DYSURIA [None]
